FAERS Safety Report 15722714 (Version 1)
Quarter: 2018Q4

REPORT INFORMATION
  Report Type: Spontaneous
  Country: US (occurrence: US)
  Receive Date: 20181214
  Receipt Date: 20181214
  Transmission Date: 20190205
  Serious: No
  Sender: FDA-Public Use
  Company Number: US-ADAAP-201800173

PATIENT
  Age: 32 Year
  Sex: Female
  Weight: 48 kg

DRUGS (8)
  1. NETSPOT [Suspect]
     Active Substance: DOTATATE GALLIUM GA-68
     Indication: POSITRON EMISSION TOMOGRAM
     Route: 042
     Dates: start: 20180927, end: 20180927
  2. NETSPOT [Suspect]
     Active Substance: DOTATATE GALLIUM GA-68
     Indication: POSITRON EMISSION TOMOGRAM
     Route: 042
     Dates: start: 20171211, end: 20171211
  3. LEVETIRACETAM. [Concomitant]
     Active Substance: LEVETIRACETAM
     Dosage: 1000 MG TWICE DAILY
     Route: 048
     Dates: start: 20180702
  4. GABAPENTIN. [Concomitant]
     Active Substance: GABAPENTIN
     Dosage: 300 MG TWICE DAILY
     Route: 048
     Dates: start: 20180702
  5. XELODA [Concomitant]
     Active Substance: CAPECITABINE
     Dosage: 1 TABLET (500MG) TWICE DAILY FOR 2 WEEKS THEN 1 WEEK OFF. REPEAT CYCLE
     Route: 048
     Dates: start: 20180626
  6. DEXAMETHASONE. [Concomitant]
     Active Substance: DEXAMETHASONE
     Dosage: 1 TABLET (2MG) TWICE DAILY, AS NEEDED
     Route: 048
     Dates: start: 20180904
  7. TEMODAR [Concomitant]
     Active Substance: TEMOZOLOMIDE
     Dosage: 1 CAPSULE DAILY MDD:1 CAP
     Route: 048
     Dates: start: 20180626
  8. TEMODAR [Concomitant]
     Active Substance: TEMOZOLOMIDE
     Dosage: 1 CAPSULE DAILY MDD:1 TAB TDD:1
     Route: 048
     Dates: start: 20180626

REACTIONS (4)
  - Erythema [Recovered/Resolved]
  - Injection site pain [Recovered/Resolved]
  - Headache [Recovered/Resolved]
  - Dizziness [Recovered/Resolved]

NARRATIVE: CASE EVENT DATE: 20180927
